FAERS Safety Report 9589594 (Version 1)
Quarter: 2013Q4

REPORT INFORMATION
  Report Type: Spontaneous
  Country: US (occurrence: US)
  Receive Date: 20131003
  Receipt Date: 20131003
  Transmission Date: 20140711
  Serious: No
  Sender: FDA-Public Use
  Company Number: US-AMGEN-USASP2012071515

PATIENT
  Sex: Male
  Weight: 131.5 kg

DRUGS (7)
  1. ENBREL [Suspect]
     Indication: PRODUCT USED FOR UNKNOWN INDICATION
     Dosage: 50 MG, QWK
     Route: 058
  2. METHOTREXATE [Concomitant]
     Dosage: INJ 200/81ML
  3. ACYCLOVIR                          /00587301/ [Concomitant]
     Dosage: 50MG/ML
  4. FOLIC ACID [Concomitant]
     Dosage: FOLIC ACID CAP 20MG
  5. TRIAMTERENE AND HYDROCHLOROTHIAZIDE [Concomitant]
     Dosage: 50-25MG
  6. ULORIC [Concomitant]
     Dosage: 40 MG, UNK
  7. ANDROGEL [Concomitant]
     Dosage: 1% 50MG

REACTIONS (2)
  - Sinusitis [Unknown]
  - Herpes zoster [Unknown]
